FAERS Safety Report 16792738 (Version 2)
Quarter: 2019Q3

REPORT INFORMATION
  Report Type: Spontaneous
  Country: PL (occurrence: PL)
  Receive Date: 20190910
  Receipt Date: 20190919
  Transmission Date: 20191005
  Serious: Yes (Other)
  Sender: FDA-Public Use
  Company Number: PL-BAXTER-2019BAX017313

PATIENT
  Age: 66 Year
  Sex: Female

DRUGS (4)
  1. FLUOROURACIL. [Suspect]
     Active Substance: FLUOROURACIL
     Indication: BREAST NEOPLASM
     Dosage: INDUCTION CHEMOTHERAPY BASED ON 2 X FEC 10 X P (WEEKLY)+H
     Route: 065
  2. EPIRUBICIN [Suspect]
     Active Substance: EPIRUBICIN
     Indication: BREAST NEOPLASM
     Dosage: INDUCTION CHEMOTHERAPY BASED ON 2 X FEC 10 X P (WEEKLY)+H
     Route: 065
  3. ENDOXAN [Suspect]
     Active Substance: CYCLOPHOSPHAMIDE
     Indication: BREAST NEOPLASM
     Dosage: INDUCTION CHEMOTHERAPY BASED ON 2 X FEC 10 X P (WEEKLY)+H
     Route: 065
  4. PACLITAXEL. [Concomitant]
     Active Substance: PACLITAXEL
     Indication: BREAST NEOPLASM
     Route: 065

REACTIONS (2)
  - Anaemia [Unknown]
  - Urinary tract infection [Unknown]
